FAERS Safety Report 9108278 (Version 6)
Quarter: 2013Q4

REPORT INFORMATION
  Report Type: Spontaneous
  Country: US (occurrence: US)
  Receive Date: 20130222
  Receipt Date: 20131023
  Transmission Date: 20140711
  Serious: No
  Sender: FDA-Public Use
  Company Number: US-009507513-1302USA008889

PATIENT
  Sex: Male

DRUGS (4)
  1. VICTRELIS [Suspect]
     Indication: HEPATITIS C
     Dosage: UNK
     Dates: start: 20120718, end: 20130530
  2. REBETOL [Suspect]
     Indication: HEPATITIS C
     Dosage: 1200 MG, QD (1 IN 1 D)
     Dates: start: 20120620, end: 20130530
  3. PEGASYS [Suspect]
     Indication: HEPATITIS C
     Dosage: UNK180 MICROGRAM, QW, PROCLICK INJECTION
     Route: 065
     Dates: start: 20120620
  4. PEGASYS [Suspect]
     Dosage: 135 MICROGRAM, QW
     Dates: start: 201303, end: 20130530

REACTIONS (25)
  - Prostatomegaly [Unknown]
  - Scar [Unknown]
  - Tremor [Recovered/Resolved]
  - Feeling cold [Unknown]
  - Anorectal discomfort [Unknown]
  - Dysuria [Unknown]
  - White blood cell count decreased [Unknown]
  - Weight decreased [Recovered/Resolved]
  - Pyrexia [Recovered/Resolved]
  - Anxiety [Unknown]
  - Fatigue [Not Recovered/Not Resolved]
  - Alopecia [Unknown]
  - Alopecia [Unknown]
  - Rash [Recovered/Resolved]
  - Chills [Unknown]
  - Nausea [Recovered/Resolved]
  - Abdominal discomfort [Unknown]
  - Sinusitis [Recovering/Resolving]
  - Abdominal pain [Unknown]
  - Immunosuppression [Unknown]
  - Anorectal discomfort [Unknown]
  - Hepatic enzyme increased [Unknown]
  - Hepatic cirrhosis [Unknown]
  - Anxiety [Unknown]
  - Depression [Unknown]
